FAERS Safety Report 16610077 (Version 1)
Quarter: 2019Q3

REPORT INFORMATION
  Report Type: Spontaneous
  Country: US (occurrence: US)
  Receive Date: 20190607
  Receipt Date: 20190607
  Transmission Date: 20191004
  Serious: Yes (Hospitalization)
  Sender: FDA-Public Use
  Company Number: None

PATIENT
  Age: 64 Year
  Sex: Female

DRUGS (14)
  1. CALCIFEROL [Concomitant]
  2. HYDROXYCHLOR [Concomitant]
     Active Substance: HYDROXYCHLOROQUINE
  3. ORENCIA [Suspect]
     Active Substance: ABATACEPT
     Indication: RHEUMATOID ARTHRITIS
     Route: 058
     Dates: start: 20180318
  4. CALCIUM [Concomitant]
     Active Substance: CALCIUM
  5. CELEBREX [Concomitant]
     Active Substance: CELECOXIB
  6. TRAMADOL. [Concomitant]
     Active Substance: TRAMADOL
  7. PLAQUENIL [Concomitant]
     Active Substance: HYDROXYCHLOROQUINE SULFATE
  8. TYLENOL [Concomitant]
     Active Substance: ACETAMINOPHEN
  9. MIGRAINE TAB FORMULA [Concomitant]
  10. ESOMEPRAZOLE. [Concomitant]
     Active Substance: ESOMEPRAZOLE MAGNESIUM
  11. FOLIC ACID. [Concomitant]
     Active Substance: FOLIC ACID
  12. METHOTREXATE. [Concomitant]
     Active Substance: METHOTREXATE
  13. MULTIVITAMIN [Concomitant]
     Active Substance: VITAMINS
  14. PREDNISONE. [Concomitant]
     Active Substance: PREDNISONE

REACTIONS (2)
  - Therapy cessation [None]
  - Intestinal obstruction [None]

NARRATIVE: CASE EVENT DATE: 20190508
